FAERS Safety Report 8048125-6 (Version None)
Quarter: 2011Q4

REPORT INFORMATION
  Report Type: 
  Country: None (occurrence: None)
  Receive Date: 20111209
  Receipt Date: 20111102
  Transmission Date: 20120403
  Serious: No
  Sender: FDA-Public Use
  Company Number: 2011SP051693

PATIENT
  Age: 54 Year
  Sex: Female

DRUGS (7)
  1. LISINOPRIL [Concomitant]
  2. PROTONIX [Concomitant]
  3. FLEXERIL [Concomitant]
  4. PEGASYS [Suspect]
     Indication: PRODUCT USED FOR UNKNOWN INDICATION
     Dates: start: 20111002
  5. RIBAVIRIN [Suspect]
     Indication: PRODUCT USED FOR UNKNOWN INDICATION
  6. VICTRELIS [Suspect]
     Indication: HEPATITIS C
     Dosage: 800 MG;TID; PO
     Route: 048
     Dates: start: 20011101, end: 20111102
  7. NEURONTIN [Concomitant]

REACTIONS (3)
  - CHEST PAIN [None]
  - BACK PAIN [None]
  - ABDOMINAL DISTENSION [None]
